FAERS Safety Report 10081158 (Version 2)
Quarter: 2014Q2

REPORT INFORMATION
  Report Type: Spontaneous
  Country: JP (occurrence: JP)
  Receive Date: 20140416
  Receipt Date: 20140416
  Transmission Date: 20141212
  Serious: Yes (Death, Hospitalization, Other)
  Sender: FDA-Public Use
  Company Number: JP-BAYER-2014-026930

PATIENT
  Age: 71 Year
  Sex: Male
  Weight: 43 kg

DRUGS (6)
  1. BAYASPIRIN [Suspect]
     Indication: MYOCARDIAL INFARCTION
     Dosage: DAILY DOSE 100 MG
     Route: 048
     Dates: start: 2008
  2. CLOPIDOGREL SULFATE [Suspect]
     Dosage: DAILY DOSE 75 MG
     Route: 048
     Dates: start: 201103
  3. UNFRACTIONATED HEPARIN [Suspect]
     Indication: CEREBROVASCULAR ACCIDENT PROPHYLAXIS
     Dosage: DAILY DOSE 5000 U
     Route: 013
     Dates: start: 20110328, end: 20110328
  4. UNFRACTIONATED HEPARIN [Suspect]
     Indication: CEREBROVASCULAR ACCIDENT PROPHYLAXIS
     Dosage: DAILY DOSE 10000 U
     Route: 042
     Dates: end: 20110329
  5. EDARAVONE [Concomitant]
     Dosage: UNK
  6. ATROPINE SULFATE [Concomitant]
     Dosage: DAILY DOSE .5 MG
     Route: 042

REACTIONS (8)
  - Subarachnoid haemorrhage [Recovered/Resolved]
  - Headache [Recovered/Resolved]
  - Vomiting [Recovered/Resolved]
  - Drug interaction [None]
  - Cerebral infarction [Recovered/Resolved with Sequelae]
  - Gastrointestinal haemorrhage [Fatal]
  - Transient ischaemic attack [None]
  - Device occlusion [None]
